FAERS Safety Report 25758063 (Version 1)
Quarter: 2025Q3

REPORT INFORMATION
  Report Type: Spontaneous
  Country: US (occurrence: US)
  Receive Date: 20250903
  Receipt Date: 20250903
  Transmission Date: 20251020
  Serious: Yes (Other)
  Sender: JOHNSON AND JOHNSON
  Company Number: US-JNJFOC-20250834326

PATIENT

DRUGS (1)
  1. BALVERSA [Suspect]
     Active Substance: ERDAFITINIB
     Indication: Transitional cell carcinoma
     Route: 048

REACTIONS (2)
  - Onychomadesis [Recovering/Resolving]
  - Onychalgia [Recovering/Resolving]

NARRATIVE: CASE EVENT DATE: 20250826
